FAERS Safety Report 8847634 (Version 1)
Quarter: 2012Q4

REPORT INFORMATION
  Report Type: 
  Country: US (occurrence: US)
  Receive Date: 20121018
  Receipt Date: 20121018
  Transmission Date: 20130627
  Serious: Yes (Hospitalization)
  Sender: FDA-Public Use
  Company Number: US-TEVA-364560USA

PATIENT
  Sex: Female

DRUGS (2)
  1. FENTORA [Suspect]
     Indication: PAIN
     Route: 002
  2. FENTANYL CITRATE [Suspect]
     Indication: BACK PAIN
     Dates: start: 20120713, end: 20120714

REACTIONS (2)
  - Tumour pain [Unknown]
  - Drug ineffective [Unknown]
